FAERS Safety Report 6004587-7 (Version None)
Quarter: 2008Q4

REPORT INFORMATION
  Report Type: 
  Country: None (occurrence: None)
  Receive Date: 20081216
  Receipt Date: 20080104
  Transmission Date: 20090506
  Serious: No
  Sender: FDA-Public Use
  Company Number: US-BRISTOL-MYERS SQUIBB COMPANY-14063424

PATIENT
  Age: 81 Year
  Sex: Female
  Weight: 70 kg

DRUGS (9)
  1. PRAVACHOL [Suspect]
  2. HYDROCHLOROTHIAZIDE [Concomitant]
  3. COUMADIN [Concomitant]
  4. LEVOXYL [Concomitant]
  5. ACTONEL [Concomitant]
  6. ALTACE [Concomitant]
  7. PREVACID [Concomitant]
  8. TOPROL-XL [Concomitant]
  9. ZETIA [Concomitant]

REACTIONS (1)
  - MUSCLE SPASMS [None]
